FAERS Safety Report 8104753-0 (Version None)
Quarter: 2012Q1

REPORT INFORMATION
  Report Type: 
  Country: None (occurrence: None)
  Receive Date: 20120201
  Receipt Date: 20120125
  Transmission Date: 20120608
  Serious: No
  Sender: FDA-Public Use
  Company Number: US-B.I. PHARMACEUTICALS,INC./RIDGEFIELD-2012-BP-01571BP

PATIENT
  Age: 43 Year
  Sex: Female

DRUGS (2)
  1. RITALIN [Concomitant]
     Indication: COGNITIVE DISORDER
     Route: 048
  2. MOBIC [Suspect]
     Indication: OSTEOARTHRITIS
     Route: 048

REACTIONS (1)
  - SUICIDAL IDEATION [None]
